FAERS Safety Report 10655718 (Version 4)
Quarter: 2015Q1

REPORT INFORMATION
  Report Type: Spontaneous
  Country: US (occurrence: US)
  Receive Date: 20141216
  Receipt Date: 20150302
  Transmission Date: 20150720
  Serious: Yes (Hospitalization)
  Sender: FDA-Public Use
  Company Number: US-PFIZER INC-2014342483

PATIENT
  Age: 69 Year
  Sex: Male
  Weight: 73 kg

DRUGS (1)
  1. VIAGRA [Suspect]
     Active Substance: SILDENAFIL CITRATE
     Indication: ERECTILE DYSFUNCTION
     Dosage: 50 MG, UNK
     Dates: start: 2008

REACTIONS (6)
  - Chest pain [Unknown]
  - Throat irritation [Not Recovered/Not Resolved]
  - Coronary artery occlusion [Recovered/Resolved]
  - Oropharyngeal discomfort [Not Recovered/Not Resolved]
  - Drug effect decreased [Unknown]
  - Nasal congestion [Not Recovered/Not Resolved]
